FAERS Safety Report 8480305-8 (Version None)
Quarter: 2012Q2

REPORT INFORMATION
  Report Type: 
  Country: None (occurrence: None)
  Receive Date: 20120629
  Receipt Date: 20120618
  Transmission Date: 20120825
  Serious: No
  Sender: FDA-Public Use
  Company Number: US-ASTRAZENECA-2012SE41286

PATIENT
  Age: 39 Year
  Sex: Female

DRUGS (1)
  1. ZOMIG [Suspect]
     Indication: MIGRAINE
     Route: 045

REACTIONS (4)
  - MIGRAINE [None]
  - NAUSEA [None]
  - REGURGITATION [None]
  - EATING DISORDER [None]
